FAERS Safety Report 10404578 (Version 1)
Quarter: 2014Q2

REPORT INFORMATION
  Report Type: Spontaneous
  Country: US (occurrence: None)
  Receive Date: 20140528
  Receipt Date: 20140528
  Transmission Date: 20141212
  Serious: Yes (Hospitalization, Other)
  Sender: FDA-Public Use
  Company Number: 1258264

PATIENT
  Age: 68 Year
  Sex: Male
  Weight: 41 kg

DRUGS (3)
  1. VALCYTE (VALGANCICLOVIR HYDROCHLORIDE) (VALGANCICLOVIR HYDROCHLORIDE) [Suspect]
     Indication: CYTOMEGALOVIRUS COLITIS
     Dosage: 1800 MG (900 MG, 2 IN 1 D), ORAL
     Route: 048
     Dates: start: 20130717
  2. ATRIPLA (EFAVIRENZ, EMTRICITABINE, TENOFOVIR) (TABLET) [Concomitant]
  3. AZITHROMYCIN [Concomitant]

REACTIONS (3)
  - Neutropenia [None]
  - Nausea [None]
  - Vomiting [None]
